FAERS Safety Report 4618751-2 (Version None)
Quarter: 2005Q1

REPORT INFORMATION
  Report Type: 
  Country: None (occurrence: None)
  Receive Date: 20050323
  Receipt Date: 20050308
  Transmission Date: 20050727
  Serious: Yes (Hospitalization)
  Sender: FDA-Public Use
  Company Number: 206423

PATIENT
  Age: 37 Year
  Sex: Female
  Weight: 50.8029 kg

DRUGS (4)
  1. AVONEX [Suspect]
     Indication: MULTIPLE SCLEROSIS
     Dosage: 30 UG; QW; IM
     Route: 030
     Dates: start: 20000101, end: 20040701
  2. AVONEX [Suspect]
     Indication: MULTIPLE SCLEROSIS
     Dosage: 30 UG; QW; IM
     Route: 030
     Dates: start: 20040701
  3. VALIUM [Concomitant]
  4. NEURONTIN [Concomitant]

REACTIONS (7)
  - ABDOMINAL PAIN [None]
  - ARTHRITIS [None]
  - BURSITIS [None]
  - EXOSTOSIS [None]
  - JOINT DISLOCATION [None]
  - MIGRAINE [None]
  - OVARIAN ENLARGEMENT [None]
